FAERS Safety Report 16788796 (Version 1)
Quarter: 2019Q3

REPORT INFORMATION
  Report Type: Spontaneous
  Country: US (occurrence: US)
  Receive Date: 20190910
  Receipt Date: 20190910
  Transmission Date: 20191005
  Serious: Yes (Hospitalization, Other)
  Sender: FDA-Public Use
  Company Number: US-HIKMA PHARMACEUTICALS USA INC.-US-H14001-19-04817

PATIENT
  Age: 9 Month
  Sex: Male
  Weight: 6.3 kg

DRUGS (4)
  1. FENTANYL. [Suspect]
     Active Substance: FENTANYL
     Indication: PROCEDURAL PAIN
     Dosage: POSTOPERATIVE DAYS 0-13: MAX DOSE 10 MCG/KG/HOUR;
     Route: 065
  2. METHADONE [Suspect]
     Active Substance: METHADONE HYDROCHLORIDE
     Indication: PROCEDURAL PAIN
     Dosage: POSTOPERATIVE DAYS 11-25: MAX DOSE 0.1 MG/KG EVERY 12 HOURS;
     Route: 065
  3. MORPHINE [Suspect]
     Active Substance: MORPHINE
     Indication: ANALGESIC THERAPY
     Dosage: POSTOPERATIVE DAYS 4-6: MAX DOSE BASAL 0.01 MG/KG/H, 0.01 MG/KG/DOSE EVERY TWO HOURS  PER NEED;
     Route: 065
  4. DEXMEDETOMIDINE. [Concomitant]
     Active Substance: DEXMEDETOMIDINE
     Indication: SEDATION
     Dosage: POSTOPERATIVE DAYS 0-13 AT A MAX DOSE 1.4 MCG/KG/HOUR;
     Route: 065

REACTIONS (1)
  - Postoperative ileus [Recovered/Resolved]
